FAERS Safety Report 25700598 (Version 1)
Quarter: 2025Q3

REPORT INFORMATION
  Report Type: Spontaneous
  Country: US (occurrence: US)
  Receive Date: 20250819
  Receipt Date: 20250819
  Transmission Date: 20251020
  Serious: Yes (Hospitalization, Other)
  Sender: ASCENT PHARMACEUTICALS INC
  Company Number: US-ASCENT-2025ASLIT00185

PATIENT

DRUGS (2)
  1. IBUPROFEN [Suspect]
     Active Substance: IBUPROFEN
     Indication: Product used for unknown indication
     Route: 048
  2. QUETIAPINE [Suspect]
     Active Substance: QUETIAPINE
     Indication: Product used for unknown indication
     Route: 048

REACTIONS (8)
  - Anticholinergic syndrome [Recovered/Resolved]
  - Urinary retention [Recovered/Resolved]
  - Delirium [Recovered/Resolved]
  - Agitation [Recovered/Resolved]
  - Flushing [Recovered/Resolved]
  - Mucosal disorder [Recovered/Resolved]
  - Tachycardia [Recovered/Resolved]
  - Intentional product misuse [Unknown]
